FAERS Safety Report 9997982 (Version 1)
Quarter: 2014Q1

REPORT INFORMATION
  Report Type: Spontaneous
  Country: US (occurrence: None)
  Receive Date: 20140224
  Receipt Date: 20140224
  Transmission Date: 20141002
  Serious: Yes (Hospitalization)
  Sender: FDA-Public Use
  Company Number: PHEH2013US005140

PATIENT
  Age: 37 Year
  Sex: Male

DRUGS (6)
  1. TOBI (TOBRAMYCIN) UNKNOWN [Suspect]
     Indication: CYSTIC FIBROSIS
     Route: 055
     Dates: start: 201210
  2. PULMOZYME (DORNASE ALFA) [Concomitant]
  3. ALBUTEROL (SALBUTAMOL) [Concomitant]
  4. SODIUM CHLORIDE (SODIUM CHLORIDE) [Concomitant]
  5. BACTRIM (SULFAMETHOXAZOLE, TRIMETHOPRIM) [Concomitant]
  6. DOXYCYCLINE (DOXYCYCLINE) [Concomitant]

REACTIONS (1)
  - Lung infection [None]
